FAERS Safety Report 11451844 (Version 3)
Quarter: 2017Q3

REPORT INFORMATION
  Report Type: Spontaneous
  Country: JP (occurrence: JP)
  Receive Date: 20150903
  Receipt Date: 20170904
  Transmission Date: 20171127
  Serious: Yes (Death)
  Sender: FDA-Public Use
  Company Number: JP-MALLINCKRODT-T201504178

PATIENT
  Age: 68 Year
  Sex: Female
  Weight: 51 kg

DRUGS (18)
  1. METHADONE [Suspect]
     Active Substance: METHADONE HYDROCHLORIDE
     Dosage: 10 MG (30 MG DAILY DOSE)
     Route: 048
     Dates: start: 20150318, end: 20150324
  2. METHADONE [Suspect]
     Active Substance: METHADONE HYDROCHLORIDE
     Dosage: 20 MG (60 MG DAILY DOSE)
     Route: 048
     Dates: start: 20150401, end: 20150415
  3. ARIXTRA [Concomitant]
     Active Substance: FONDAPARINUX SODIUM
     Dosage: 5 MG
     Route: 058
     Dates: end: 20150311
  4. OXINORM [Concomitant]
     Active Substance: OXYCODONE HYDROCHLORIDE
     Dosage: 10 - 35 MG
     Route: 048
     Dates: start: 20150310
  5. TS-1 [Concomitant]
     Active Substance: GIMERACIL\OTERACIL\TEGAFUR
     Dosage: 80 MG
     Route: 048
     Dates: end: 20150330
  6. LOXONIN [Concomitant]
     Active Substance: LOXOPROFEN SODIUM
     Indication: ANALGESIC THERAPY
     Dosage: UNK
     Route: 061
     Dates: end: 20150416
  7. LIXIANA [Concomitant]
     Active Substance: EDOXABAN TOSYLATE
     Dosage: 30 MG
     Route: 048
     Dates: end: 20150415
  8. OXYCONTIN [Concomitant]
     Active Substance: OXYCODONE HYDROCHLORIDE
     Indication: ANALGESIC THERAPY
     Dosage: 160 MG
     Route: 048
     Dates: end: 20150317
  9. AMARYL [Concomitant]
     Active Substance: GLIMEPIRIDE
     Dosage: 1 MG
     Route: 048
     Dates: end: 20150410
  10. MAGMITT [Concomitant]
     Active Substance: MAGNESIUM OXIDE
     Dosage: 1980 MG
     Route: 048
     Dates: end: 20150415
  11. LUNESTA [Concomitant]
     Active Substance: ESZOPICLONE
     Dosage: 2 MG
     Route: 048
     Dates: end: 20150415
  12. RINDERON V [Concomitant]
     Active Substance: BETAMETHASONE VALERATE
     Indication: ANALGESIC THERAPY
     Dosage: 0.5 MG
     Route: 048
     Dates: start: 20150319, end: 20150415
  13. GLACTIV [Concomitant]
     Active Substance: SITAGLIPTIN
     Dosage: 50 MG
     Route: 048
     Dates: end: 20150410
  14. METHADONE [Suspect]
     Active Substance: METHADONE HYDROCHLORIDE
     Indication: CANCER PAIN
     Dosage: 5 MG (15 MG DAILY DOSE)
     Route: 048
     Dates: start: 20150311, end: 20150317
  15. METHADONE [Suspect]
     Active Substance: METHADONE HYDROCHLORIDE
     Dosage: 15 MG (45 MG DAILY DOSE)
     Route: 048
     Dates: start: 20150325, end: 20150331
  16. BROTIZOLAM [Concomitant]
     Active Substance: BROTIZOLAM
     Dosage: 0.25 MG
     Route: 048
     Dates: start: 20150311, end: 20150415
  17. PARIET [Concomitant]
     Active Substance: RABEPRAZOLE SODIUM
     Dosage: 10 MG
     Route: 048
     Dates: end: 20150415
  18. MORPHINE HYDROCHLORIDE [Concomitant]
     Active Substance: MORPHINE HYDROCHLORIDE
     Indication: ANALGESIC THERAPY
     Dosage: 50 MG
     Route: 051
     Dates: start: 20150414, end: 20150417

REACTIONS (3)
  - Constipation [Not Recovered/Not Resolved]
  - Pancreatic carcinoma [Fatal]
  - Somnolence [Not Recovered/Not Resolved]

NARRATIVE: CASE EVENT DATE: 20150318
